FAERS Safety Report 8164358-2 (Version None)
Quarter: 2012Q1

REPORT INFORMATION
  Report Type: 
  Country: None (occurrence: None)
  Receive Date: 20120224
  Receipt Date: 20120213
  Transmission Date: 20120608
  Serious: Yes (Other)
  Sender: FDA-Public Use
  Company Number: US-BAYER-2012-015116

PATIENT
  Age: 37 Year
  Sex: Female
  Weight: 72.562 kg

DRUGS (2)
  1. ALKA-SELTZER PLUS DAY COLD [Suspect]
     Dosage: BOTTLE COUNT 20S
  2. ALKA-SELTZER PLUS COLD SPARKLING ORIGINAL [Suspect]
     Indication: NASOPHARYNGITIS
     Dosage: UNK
     Dates: end: 20120213

REACTIONS (3)
  - RETCHING [None]
  - LOSS OF CONSCIOUSNESS [None]
  - DIZZINESS [None]
